FAERS Safety Report 4949185-9 (Version None)
Quarter: 2006Q1

REPORT INFORMATION
  Report Type: 
  Country: None (occurrence: None)
  Receive Date: 20060316
  Receipt Date: 20060303
  Transmission Date: 20060701
  Serious: Yes (Hospitalization, Other)
  Sender: FDA-Public Use
  Company Number: 2006032628

PATIENT
  Age: 82 Year
  Sex: Male
  Weight: 81.6475 kg

DRUGS (1)
  1. LIPITOR [Suspect]
     Indication: BLOOD CHOLESTEROL INCREASED
     Dosage: 10 MG (10 MG, 1 IN 1 D)

REACTIONS (2)
  - HYPERTENSION [None]
  - MYOCARDIAL INFARCTION [None]
